FAERS Safety Report 4819689-8 (Version None)
Quarter: 2005Q4

REPORT INFORMATION
  Report Type: 
  Country: None (occurrence: None)
  Receive Date: 20051102
  Receipt Date: 20051102
  Transmission Date: 20060501
  Serious: Yes (Hospitalization)
  Sender: FDA-Public Use
  Company Number: None

PATIENT

DRUGS (2)
  1. GEMCITABINE [Suspect]
     Indication: BREAST CANCER
     Dosage: 205 /MG X4 DOSES
     Dates: start: 20050221, end: 20050728
  2. TRASTUZUMAB [Suspect]
     Indication: BREAST CANCER
     Dosage: 650 MG IV Q21 DAYS
     Route: 042
     Dates: start: 20050221

REACTIONS (1)
  - MIGRAINE [None]
